FAERS Safety Report 25316834 (Version 1)
Quarter: 2025Q2

REPORT INFORMATION
  Report Type: Spontaneous
  Country: RO (occurrence: RO)
  Receive Date: 20250515
  Receipt Date: 20250515
  Transmission Date: 20250716
  Serious: Yes (Death, Other)
  Sender: AMGEN
  Company Number: RO-AMGEN-ROUSP2025094258

PATIENT
  Age: 52 Year
  Sex: Female

DRUGS (1)
  1. BLINCYTO [Suspect]
     Active Substance: BLINATUMOMAB
     Indication: Acute lymphocytic leukaemia
     Route: 040

REACTIONS (3)
  - Death [Fatal]
  - Neurotoxicity [Unknown]
  - Acute lymphocytic leukaemia recurrent [Unknown]
